FAERS Safety Report 25788971 (Version 2)
Quarter: 2025Q4

REPORT INFORMATION
  Report Type: Spontaneous
  Country: EU (occurrence: EU)
  Receive Date: 20250911
  Receipt Date: 20251013
  Transmission Date: 20260118
  Serious: No
  Sender: AUROBINDO
  Company Number: EU-AUROBINDO-AUR-APL-2025-045147

PATIENT
  Age: 65 Year
  Sex: Male
  Weight: 115 kg

DRUGS (3)
  1. METFORMIN [Suspect]
     Active Substance: METFORMIN HYDROCHLORIDE
     Indication: Type 2 diabetes mellitus
     Dosage: 1000 MILLIGRAM, DAILY
     Route: 065
  2. AMLODIPINE [Concomitant]
     Active Substance: AMLODIPINE BESYLATE
     Indication: Hypertension
     Dosage: 5 MILLIGRAM
     Route: 065
  3. AMLODIPINE [Concomitant]
     Active Substance: AMLODIPINE BESYLATE
     Dosage: 10 MILLIGRAM, DAILY
     Route: 065

REACTIONS (1)
  - Weight increased [Unknown]
